FAERS Safety Report 6278306-3 (Version None)
Quarter: 2009Q3

REPORT INFORMATION
  Report Type: 
  Country: None (occurrence: None)
  Receive Date: 20090722
  Receipt Date: 20090715
  Transmission Date: 20100115
  Serious: Yes (Hospitalization, Other)
  Sender: FDA-Public Use
  Company Number: US-WYE-H08876709

PATIENT
  Sex: Male
  Weight: 10 kg

DRUGS (2)
  1. BENEFIX [Suspect]
     Indication: FACTOR IX DEFICIENCY
     Dosage: SOME PART OF A DOSE (USUAL DOSE 900U) IN THE EMERGENCY ROOM; VIAL STRENGTH 250 IU
     Route: 042
     Dates: start: 20090406, end: 20090406
  2. BENEFIX [Suspect]
     Dosage: 50 - 100/KG ON DEMAND X 3 INFUSIONS (USUAL DOSE 900U) FROM AN UNKNOWN DATE TO 05-APR-2009
     Route: 042

REACTIONS (2)
  - ANAPHYLACTIC SHOCK [None]
  - FACTOR IX INHIBITION [None]
